FAERS Safety Report 19289389 (Version 1)
Quarter: 2021Q2

REPORT INFORMATION
  Report Type: Report from Study
  Country: AR (occurrence: AR)
  Receive Date: 20210521
  Receipt Date: 20210521
  Transmission Date: 20210717
  Serious: Yes (Hospitalization, Other)
  Sender: FDA-Public Use
  Company Number: NVSC2021AR070408

PATIENT
  Sex: Male

DRUGS (1)
  1. OMNITROPE [Suspect]
     Active Substance: SOMATROPIN
     Indication: PRADER-WILLI SYNDROME
     Dosage: 0.2 MG, QD (OMNITROPE 5 MG/1.5 ML)
     Route: 058
     Dates: start: 20191217

REACTIONS (4)
  - Hypotonia [Unknown]
  - Seizure [Unknown]
  - Bronchospasm [Unknown]
  - Partial seizures [Unknown]
